FAERS Safety Report 16172262 (Version 1)
Quarter: 2019Q2

REPORT INFORMATION
  Report Type: Spontaneous
  Country: US (occurrence: US)
  Receive Date: 20190409
  Receipt Date: 20190409
  Transmission Date: 20190711
  Serious: Yes (Death, Life-Threatening, Other)
  Sender: FDA-Public Use
  Company Number: US-AXELLIA-002382

PATIENT
  Age: 53 Year
  Sex: Male

DRUGS (8)
  1. MELPHALAN. [Suspect]
     Active Substance: MELPHALAN
     Indication: PLASMA CELL MYELOMA
  2. METRONIDAZOLE. [Concomitant]
     Active Substance: METRONIDAZOLE
     Indication: FEBRILE NEUTROPENIA
  3. VANCOMYCIN [Suspect]
     Active Substance: VANCOMYCIN
     Indication: FEBRILE NEUTROPENIA
  4. CYCLOPHOSPHAMIDE/CYCLOPHOSPHAMIDE MONOHYDRATE [Suspect]
     Active Substance: CYCLOPHOSPHAMIDE
     Indication: PLASMA CELL MYELOMA
     Dosage: HIGH-DOSE CYCLOPHOSPHAMIDE MOBILIZATION
  5. METRONIDAZOLE. [Concomitant]
     Active Substance: METRONIDAZOLE
     Indication: STREPTOCOCCAL BACTERAEMIA
  6. CEFAZOLIN [Concomitant]
     Active Substance: CEFAZOLIN
     Indication: FEBRILE NEUTROPENIA
  7. CEFAZOLIN [Concomitant]
     Active Substance: CEFAZOLIN
     Indication: STREPTOCOCCAL BACTERAEMIA
  8. VANCOMYCIN [Suspect]
     Active Substance: VANCOMYCIN
     Indication: STREPTOCOCCAL BACTERAEMIA

REACTIONS (1)
  - Venoocclusive liver disease [Fatal]
